FAERS Safety Report 5785934-8 (Version None)
Quarter: 2008Q2

REPORT INFORMATION
  Report Type: 
  Country: None (occurrence: None)
  Receive Date: 20080624
  Receipt Date: 20070608
  Transmission Date: 20081010
  Serious: No
  Sender: FDA-Public Use
  Company Number: US-ASTRAZENECA-2007UW13842

PATIENT
  Age: 68 Year
  Sex: Female
  Weight: 56.7 kg

DRUGS (3)
  1. PULMICORT-100 [Suspect]
     Indication: EMPHYSEMA
     Route: 055
  2. ALBUTEROL [Concomitant]
  3. NEBULIZER MEDICINE [Concomitant]

REACTIONS (5)
  - DERMATITIS CONTACT [None]
  - DEVICE INEFFECTIVE [None]
  - HIATUS HERNIA [None]
  - OESOPHAGEAL DISORDER [None]
  - THROAT IRRITATION [None]
